FAERS Safety Report 4789711-6 (Version None)
Quarter: 2005Q4

REPORT INFORMATION
  Report Type: 
  Country: None (occurrence: None)
  Receive Date: 20051006
  Receipt Date: 20050921
  Transmission Date: 20060501
  Serious: Yes (Hospitalization)
  Sender: FDA-Public Use
  Company Number: SEWYE998722SEP05

PATIENT
  Age: 44 Year
  Sex: Female

DRUGS (3)
  1. ENBREL [Suspect]
     Indication: DRUG USE FOR UNKNOWN INDICATION
     Dosage: THE DOSE REGIMEN WAS NOT SPECIFIED
     Route: 058
     Dates: start: 20050301, end: 20050901
  2. IMUREL [Concomitant]
     Dosage: THE DOSE REGIMEN WAS NOT SPECIFIED
     Dates: start: 19990101
  3. DICLOFENAC [Concomitant]

REACTIONS (1)
  - PSYCHOTIC DISORDER [None]
